FAERS Safety Report 22644910 (Version 1)
Quarter: 2023Q2

REPORT INFORMATION
  Report Type: Report from Study
  Country: US (occurrence: US)
  Receive Date: 20230627
  Receipt Date: 20230627
  Transmission Date: 20230722
  Serious: Yes (Other)
  Sender: FDA-Public Use
  Company Number: US-ABBVIE-5305474

PATIENT
  Sex: Female

DRUGS (2)
  1. SKYRIZI [Suspect]
     Active Substance: RISANKIZUMAB-RZAA
     Indication: Psoriasis
     Dosage: FORM STRENGTH: 150 MILLIGRAM, FREQUENCY TEXT: WEEK 4
     Route: 058
     Dates: start: 20230617
  2. SKYRIZI [Suspect]
     Active Substance: RISANKIZUMAB-RZAA
     Dosage: FIRST ADMIN DATE: 01 MAY 2023,FORM STRENGTH: 150 MILLIGRAM, FREQUENCY TEXT: WEEK 0
     Route: 058

REACTIONS (1)
  - Malignant neoplasm of eye [Unknown]

NARRATIVE: CASE EVENT DATE: 20230101
